FAERS Safety Report 12183248 (Version 1)
Quarter: 2016Q1

REPORT INFORMATION
  Report Type: Spontaneous
  Country: TW (occurrence: TW)
  Receive Date: 20160316
  Receipt Date: 20160316
  Transmission Date: 20160526
  Serious: Yes (Other)
  Sender: FDA-Public Use
  Company Number: TW-PFIZER INC-2016151129

PATIENT

DRUGS (1)
  1. CRIZOTINIB [Suspect]
     Active Substance: CRIZOTINIB
     Dosage: 1 DF, 2X/DAY (BID)
     Dates: start: 201602

REACTIONS (2)
  - Cardiac failure congestive [Unknown]
  - Fluid retention [Unknown]

NARRATIVE: CASE EVENT DATE: 2016
